FAERS Safety Report 14611091 (Version 4)
Quarter: 2020Q1

REPORT INFORMATION
  Report Type: Spontaneous
  Country: US (occurrence: US)
  Receive Date: 20180308
  Receipt Date: 20200316
  Transmission Date: 20200409
  Serious: Yes (Other)
  Sender: FDA-Public Use
  Company Number: US-BRISTOL-MYERS SQUIBB COMPANY-BMS-2018-021788

PATIENT
  Age: 57 Year
  Sex: Female

DRUGS (2)
  1. SPRYCEL [Suspect]
     Active Substance: DASATINIB
     Indication: WHITE BLOOD CELL COUNT INCREASED
     Dosage: 100 MG, QD
     Route: 048
     Dates: start: 20170715
  2. SPRYCEL [Suspect]
     Active Substance: DASATINIB
     Indication: PRODUCT USED FOR UNKNOWN INDICATION
     Dosage: 100 MG, QD
     Route: 048
     Dates: start: 20190925

REACTIONS (3)
  - Neuropathy peripheral [Unknown]
  - Hypothyroidism [Unknown]
  - Thyroid function test abnormal [Unknown]

NARRATIVE: CASE EVENT DATE: 20180201
